FAERS Safety Report 7868129-3 (Version None)
Quarter: 2011Q4

REPORT INFORMATION
  Report Type: 
  Country: None (occurrence: None)
  Receive Date: 20111028
  Receipt Date: 20111017
  Transmission Date: 20120403
  Serious: No
  Sender: FDA-Public Use
  Company Number: US-ELI_LILLY_AND_COMPANY-US201110004562

PATIENT
  Sex: Female

DRUGS (1)
  1. ZYPREXA RELPREVV [Suspect]
     Dosage: 150 MG, 2/W

REACTIONS (4)
  - INJECTION SITE ERYTHEMA [None]
  - EOSINOPHIL COUNT INCREASED [None]
  - INJECTION SITE INDURATION [None]
  - INJECTION SITE SWELLING [None]
